FAERS Safety Report 8511186-1 (Version None)
Quarter: 2012Q3

REPORT INFORMATION
  Report Type: 
  Country: None (occurrence: None)
  Receive Date: 20120716
  Receipt Date: 20120704
  Transmission Date: 20120928
  Serious: Yes (Hospitalization)
  Sender: FDA-Public Use
  Company Number: CO-AMGEN-COLSP2012042478

PATIENT
  Age: 67 Year
  Sex: Male

DRUGS (3)
  1. NAPROXEN [Concomitant]
     Dosage: UNK
     Route: 065
  2. LOSARTAN POTASSIUM [Concomitant]
     Indication: HYPERTENSION
     Dosage: UNK
     Route: 065
  3. ENBREL [Suspect]
     Indication: RHEUMATOID ARTHRITIS
     Dosage: 50 MG, WEEKLY
     Route: 058
     Dates: start: 20120401, end: 20120619

REACTIONS (3)
  - GAIT DISTURBANCE [None]
  - ARTHRITIS [None]
  - DRUG INEFFECTIVE [None]
